FAERS Safety Report 8036950 (Version 2)
Quarter: 2012Q4

REPORT INFORMATION
  Report Type: 
  Country: US (occurrence: US)
  Receive Date: 20110715
  Receipt Date: 20121130
  Transmission Date: 20130627
  Serious: Yes (Hospitalization)
  Sender: FDA-Public Use
  Company Number: US-JNJFOC-20110703438

PATIENT
  Age: 41 Year
  Sex: Female
  Weight: 67 kg

DRUGS (2)
  1. PARACETAMOL [Suspect]
     Indication: PRODUCT USED FOR UNKNOWN INDICATION
     Dosage: 30 grams
     Route: 048
     Dates: start: 20081013
  2. TRAZODONE [Suspect]
     Indication: PRODUCT USED FOR UNKNOWN INDICATION
     Route: 048
     Dates: start: 20081014

REACTIONS (2)
  - Intentional overdose [Unknown]
  - Liver injury [Recovering/Resolving]
